FAERS Safety Report 14606494 (Version 1)
Quarter: 2018Q1

REPORT INFORMATION
  Report Type: Spontaneous
  Country: CA (occurrence: CA)
  Receive Date: 20180307
  Receipt Date: 20180307
  Transmission Date: 20180509
  Serious: Yes (Other)
  Sender: FDA-Public Use
  Company Number: CA-BAXTER-2018BAX006490

PATIENT
  Sex: Female

DRUGS (8)
  1. EPIRUBICIN [Suspect]
     Active Substance: EPIRUBICIN
     Indication: PRODUCT USED FOR UNKNOWN INDICATION
     Dosage: FEC-D CHEMOTHERAPY
     Route: 065
     Dates: start: 2013
  2. LETROZOLE. [Suspect]
     Active Substance: LETROZOLE
     Indication: PRODUCT USED FOR UNKNOWN INDICATION
     Route: 065
     Dates: end: 201703
  3. PROCYTOX (CYCLOPHOSPHAMIDE) 2000MG/VIAL [Suspect]
     Active Substance: CYCLOPHOSPHAMIDE
     Indication: PRODUCT USED FOR UNKNOWN INDICATION
     Dosage: FEC-D CHEMOTHERAPY
     Route: 065
     Dates: start: 2013
  4. FLUOROURACIL. [Suspect]
     Active Substance: FLUOROURACIL
     Indication: PRODUCT USED FOR UNKNOWN INDICATION
     Dosage: FEC-D CHEMOTHERAPY
     Route: 065
     Dates: start: 2013
  5. FASLODEX [Suspect]
     Active Substance: FULVESTRANT
     Indication: DISEASE PROGRESSION
     Route: 065
     Dates: start: 201707, end: 201801
  6. TAMOXIFEN [Suspect]
     Active Substance: TAMOXIFEN
     Indication: PRODUCT USED FOR UNKNOWN INDICATION
     Route: 065
     Dates: end: 201703
  7. DOCETAXEL. [Suspect]
     Active Substance: DOCETAXEL
     Indication: PRODUCT USED FOR UNKNOWN INDICATION
     Dosage: FEC-D CHEMOTHERAPY
     Route: 065
     Dates: start: 2013
  8. FASLODEX [Suspect]
     Active Substance: FULVESTRANT
     Indication: DISEASE PROGRESSION

REACTIONS (1)
  - Disease progression [Unknown]
